FAERS Safety Report 11647395 (Version 1)
Quarter: 2015Q4

REPORT INFORMATION
  Report Type: Spontaneous
  Country: US (occurrence: None)
  Receive Date: 20151019
  Receipt Date: 20151019
  Transmission Date: 20160304
  Serious: No
  Sender: FDA-Public Use
  Company Number: None

PATIENT
  Age: 62 Year
  Sex: Male
  Weight: 51.26 kg

DRUGS (4)
  1. PRADAXA [Concomitant]
     Active Substance: DABIGATRAN ETEXILATE MESYLATE
  2. VITAMIN C [Concomitant]
     Active Substance: ASCORBIC ACID
  3. CLOSE-UP MOUTHWASH USE 20 ML., BOTTLE IS 473 ML. DR. FRESH LLC [Suspect]
     Active Substance: SODIUM FLUORIDE
     Indication: DENTAL CARE
     Dosage: AS NEEDED MOUTHWASH
     Dates: start: 20151011, end: 20151016
  4. MATAPROLOL [Concomitant]

REACTIONS (1)
  - Application site pain [None]

NARRATIVE: CASE EVENT DATE: 20151016
